FAERS Safety Report 7719385-3 (Version None)
Quarter: 2011Q3

REPORT INFORMATION
  Report Type: 
  Country: None (occurrence: None)
  Receive Date: 20110830
  Receipt Date: 20110826
  Transmission Date: 20111222
  Serious: No
  Sender: FDA-Public Use
  Company Number: US-TEVA-298237USA

PATIENT
  Sex: Female

DRUGS (2)
  1. ASPIRIN [Concomitant]
  2. COPAXONE [Suspect]
     Indication: MULTIPLE SCLEROSIS
     Route: 058

REACTIONS (6)
  - CHILLS [None]
  - NAUSEA [None]
  - LOWER LIMB FRACTURE [None]
  - MUSCLE SPASTICITY [None]
  - FATIGUE [None]
  - CHEST DISCOMFORT [None]
